FAERS Safety Report 4817791-8 (Version None)
Quarter: 2005Q4

REPORT INFORMATION
  Report Type: 
  Country: None (occurrence: None)
  Receive Date: 20051031
  Receipt Date: 20051031
  Transmission Date: 20060501
  Serious: Yes (Hospitalization)
  Sender: FDA-Public Use
  Company Number: None

PATIENT
  Age: 45 Year
  Sex: Male
  Weight: 161.0269 kg

DRUGS (1)
  1. NIASPAN [Suspect]
     Dosage: 500MG QHS

REACTIONS (5)
  - DIZZINESS [None]
  - FALL [None]
  - FLUSHING [None]
  - HEADACHE [None]
  - SKIN BURNING SENSATION [None]
